FAERS Safety Report 13771074 (Version 1)
Quarter: 2017Q3

REPORT INFORMATION
  Report Type: Spontaneous
  Country: US (occurrence: US)
  Receive Date: 20170720
  Receipt Date: 20170720
  Transmission Date: 20171127
  Serious: Yes (Death, Other)
  Sender: FDA-Public Use
  Company Number: US-ORION CORPORATION ORION PHARMA-17_00002481

PATIENT
  Age: 45 Year
  Sex: Female

DRUGS (2)
  1. CLOBETASOL 0.05% [Concomitant]
     Active Substance: CLOBETASOL
     Indication: MYCOSIS FUNGOIDES
     Dosage: STRENGTH: 0.05%
     Route: 065
  2. METHOTREXATE. [Suspect]
     Active Substance: METHOTREXATE
     Indication: MYCOSIS FUNGOIDES
     Route: 065

REACTIONS (4)
  - Lymphoma transformation [Fatal]
  - Central nervous system lymphoma [Fatal]
  - Mycosis fungoides [Fatal]
  - Hydrocephalus [Fatal]
